FAERS Safety Report 7298485-9 (Version None)
Quarter: 2011Q1

REPORT INFORMATION
  Report Type: 
  Country: None (occurrence: None)
  Receive Date: 20110217
  Receipt Date: 20110203
  Transmission Date: 20110831
  Serious: Yes (Other)
  Sender: FDA-Public Use
  Company Number: US-BAYER-201020682NA

PATIENT
  Sex: Female

DRUGS (3)
  1. MINOCYCLINE HCL [Concomitant]
  2. UNCODEABLE ^UNCLASSIFIABLE^ [Concomitant]
  3. YASMIN [Suspect]
     Indication: ORAL CONTRACEPTION
     Route: 048
     Dates: start: 20041001

REACTIONS (5)
  - GALLBLADDER CHOLESTEROLOSIS [None]
  - BACK PAIN [None]
  - CHOLELITHIASIS [None]
  - CHOLECYSTITIS CHRONIC [None]
  - ABDOMINAL PAIN UPPER [None]
